FAERS Safety Report 9188906 (Version 3)
Quarter: 2014Q1

REPORT INFORMATION
  Report Type: Spontaneous
  Country: US (occurrence: US)
  Receive Date: 20130326
  Receipt Date: 20140317
  Transmission Date: 20141002
  Serious: Yes (Death, Hospitalization)
  Sender: FDA-Public Use
  Company Number: US-B.I. PHARMACEUTICALS,INC./RIDGEFIELD-2013-BI-08018BP

PATIENT
  Sex: Male
  Weight: 77.84 kg

DRUGS (9)
  1. PRADAXA [Suspect]
     Indication: PRODUCT USED FOR UNKNOWN INDICATION
     Dosage: 150 MG
     Route: 048
     Dates: start: 20110701, end: 20111114
  2. CAPTOPRIL [Concomitant]
     Route: 065
  3. CARAFATE [Concomitant]
     Route: 065
  4. FUROSEMIDE [Concomitant]
     Route: 065
  5. LIPITOR [Concomitant]
     Route: 065
  6. METOPROLOL [Concomitant]
     Route: 065
  7. PANTOPRAZOLE [Concomitant]
     Route: 065
  8. RAPAFLO [Concomitant]
     Route: 065
  9. SPIRONOLACTONE [Concomitant]
     Route: 065

REACTIONS (3)
  - Acute myocardial infarction [Fatal]
  - Gastrointestinal haemorrhage [Unknown]
  - Abdominal discomfort [Unknown]
